FAERS Safety Report 8243567-8 (Version None)
Quarter: 2012Q1

REPORT INFORMATION
  Report Type: 
  Country: None (occurrence: None)
  Receive Date: 20120329
  Receipt Date: 20120328
  Transmission Date: 20120608
  Serious: Yes (Death, Hospitalization)
  Sender: FDA-Public Use
  Company Number: PHFR2012GB001882

PATIENT
  Sex: Male

DRUGS (1)
  1. CLOZARIL [Suspect]
     Indication: SCHIZOPHRENIA
     Dosage: UNK UKN, UNK
     Dates: start: 20110408

REACTIONS (5)
  - FALL [None]
  - PARKINSON'S DISEASE [None]
  - RIB FRACTURE [None]
  - PNEUMONIA [None]
  - PNEUMOTHORAX [None]
